FAERS Safety Report 18567167 (Version 5)
Quarter: 2021Q1

REPORT INFORMATION
  Report Type: Spontaneous
  Country: JP (occurrence: JP)
  Receive Date: 20201201
  Receipt Date: 20210106
  Transmission Date: 20210419
  Serious: Yes (Life-Threatening, Other)
  Sender: FDA-Public Use
  Company Number: JP-NEUROCRINE BIOSCIENCES INC.-2020NBI04410

PATIENT
  Age: 72 Year
  Sex: Female

DRUGS (10)
  1. LAXOBERON [Concomitant]
     Active Substance: SODIUM PICOSULFATE
  2. FP?OD [Concomitant]
     Active Substance: SELEGILINE HYDROCHLORIDE
  3. MIRAPEX [Suspect]
     Active Substance: PRAMIPEXOLE DIHYDROCHLORIDE
     Indication: PARKINSON^S DISEASE
     Route: 048
  4. GOOFICE [Concomitant]
     Active Substance: ELOBIXIBAT
  5. MAGMITT [Concomitant]
     Active Substance: MAGNESIUM OXIDE
  6. LANDSEN [Concomitant]
     Active Substance: CLONAZEPAM
  7. ONGENTYS [Suspect]
     Active Substance: OPICAPONE
     Indication: PARKINSON^S DISEASE
     Dosage: BEFORE BREAKFAST
     Route: 048
     Dates: start: 20201017, end: 20201031
  8. NEODOPASOL [Concomitant]
     Active Substance: BENSERAZIDE HYDROCHLORIDE\LEVODOPA
  9. NOURIAST [Concomitant]
     Active Substance: ISTRADEFYLLINE
  10. BELSOMRA [Concomitant]
     Active Substance: SUVOREXANT

REACTIONS (4)
  - Drug eruption [Recovered/Resolved]
  - Somnolence [Recovered/Resolved]
  - Potentiating drug interaction [Unknown]
  - Therapy cessation [Unknown]

NARRATIVE: CASE EVENT DATE: 202010
